FAERS Safety Report 5540658-7 (Version None)
Quarter: 2007Q4

REPORT INFORMATION
  Report Type: 
  Country: None (occurrence: None)
  Receive Date: 20071129
  Receipt Date: 20070924
  Transmission Date: 20080405
  Serious: Yes (Other)
  Sender: FDA-Public Use
  Company Number: US200709000493

PATIENT
  Age: 45 Year
  Sex: Female

DRUGS (3)
  1. ZYPREXA [Suspect]
     Indication: DEPRESSION
     Dosage: 20 MG, DAILY (1/D), ORAL
     Route: 048
     Dates: start: 19980101, end: 20000101
  2. PROZAC [Suspect]
     Indication: DEPRESSION
     Dosage: ORAL
     Route: 048
     Dates: end: 20000101
  3. SERTRALINE [Concomitant]

REACTIONS (5)
  - CHEST PAIN [None]
  - OBESITY [None]
  - OVERDOSE [None]
  - TYPE 2 DIABETES MELLITUS [None]
  - WEIGHT INCREASED [None]
